FAERS Safety Report 12961403 (Version 1)
Quarter: 2016Q4

REPORT INFORMATION
  Report Type: Spontaneous
  Country: US (occurrence: US)
  Receive Date: 20161121
  Receipt Date: 20161121
  Transmission Date: 20170207
  Serious: No
  Sender: FDA-Public Use
  Company Number: US-SHIRE-US201617643

PATIENT
  Age: 62 Year
  Sex: Female
  Weight: 63.39 kg

DRUGS (3)
  1. WELLBUTRIN [Concomitant]
     Active Substance: BUPROPION HYDROCHLORIDE
     Indication: DEPRESSION
     Dosage: 150 MG, 1X/DAY:QD
     Route: 048
  2. XIIDRA [Suspect]
     Active Substance: LIFITEGRAST
     Indication: DRY EYE
     Dosage: 1 GTT, 2X/DAY:BID
     Route: 047
     Dates: start: 20161103, end: 20161111
  3. NALTREXONE                         /00723402/ [Concomitant]
     Indication: ALCOHOLISM
     Dosage: 50 MG, 1X/DAY:QD (AT BEDTIME)
     Route: 048
     Dates: start: 20161001, end: 20161107

REACTIONS (3)
  - Condition aggravated [Unknown]
  - Eye irritation [Unknown]
  - Ocular hyperaemia [Unknown]

NARRATIVE: CASE EVENT DATE: 20161103
